FAERS Safety Report 5232866-X (Version None)
Quarter: 2007Q1

REPORT INFORMATION
  Report Type: 
  Country: None (occurrence: None)
  Receive Date: 20070207
  Receipt Date: 20070126
  Transmission Date: 20070707
  Serious: Yes (Other)
  Sender: FDA-Public Use
  Company Number: GB-ELI_LILLY_AND_COMPANY-GB200609006904

PATIENT
  Age: 43 Year
  Sex: Female

DRUGS (3)
  1. CHLORPROMAZINE [Concomitant]
     Indication: AGITATION
     Dosage: 25 MG, 2/D
     Dates: start: 20060403
  2. VENLAFAXINE HCL [Concomitant]
     Dosage: 75 MG, EACH MORNING
     Dates: end: 20060403
  3. PROZAC [Suspect]
     Indication: DEPRESSION
     Dosage: 20MG MANE
     Dates: start: 20060403, end: 20060928

REACTIONS (2)
  - DRUG EXPOSURE DURING PREGNANCY [None]
  - PRE-ECLAMPSIA [None]
